FAERS Safety Report 15854502 (Version 2)
Quarter: 2019Q2

REPORT INFORMATION
  Report Type: Report from Study
  Country: ES (occurrence: ES)
  Receive Date: 20190122
  Receipt Date: 20190613
  Transmission Date: 20190711
  Serious: Yes (Hospitalization)
  Sender: FDA-Public Use
  Company Number: ES-PFIZER INC-2019021181

PATIENT
  Age: 78 Year
  Sex: Male
  Weight: 72.9 kg

DRUGS (18)
  1. OMEPRAZOLE. [Concomitant]
     Active Substance: OMEPRAZOLE
     Indication: GASTROINTESTINAL DISORDER PROPHYLAXIS
     Dosage: 20 MG, 2X/DAY (EVERY 12 HOURS)
     Route: 048
     Dates: start: 2014
  2. ADIRO [Concomitant]
     Active Substance: ASPIRIN
     Indication: STENT PLACEMENT
  3. BISOPROLOL [Concomitant]
     Active Substance: BISOPROLOL
     Indication: ANGIOPATHY
     Dosage: 2.5 MG, 1X/DAY
     Route: 048
     Dates: start: 2014
  4. AFLIBERCEPT [Suspect]
     Active Substance: AFLIBERCEPT
     Dosage: 291.6 MG, EVERY 2 WEEKS
     Route: 042
     Dates: start: 20180724, end: 20180724
  5. FLUOROURACIL. [Suspect]
     Active Substance: FLUOROURACIL
     Dosage: 2635.2 MG, EVERY 2 WEEKS
     Route: 042
     Dates: start: 20181220, end: 20181220
  6. IRINOTECAN HCL [Suspect]
     Active Substance: IRINOTECAN HYDROCHLORIDE
     Indication: COLORECTAL CANCER
     Dosage: 197.64 MG, EVERY 2 WEEKS
     Route: 042
     Dates: start: 20181218, end: 20181218
  7. IRINOTECAN HCL [Suspect]
     Active Substance: IRINOTECAN HYDROCHLORIDE
     Dosage: 197.64 MG, EVERY 2 WEEKS
     Route: 042
     Dates: start: 20180724, end: 20180724
  8. CALCIUM FOLINATE [Suspect]
     Active Substance: LEUCOVORIN CALCIUM
     Dosage: 732 MG, EVERY 2 WEEKS
     Route: 042
     Dates: start: 20180724, end: 20180724
  9. BROMHEXINE [Concomitant]
     Active Substance: BROMHEXINE
     Indication: INSOMNIA
     Dosage: 1 MG, 1X/DAY
     Route: 048
     Dates: start: 1993
  10. CALCIUM FOLINATE [Suspect]
     Active Substance: LEUCOVORIN CALCIUM
     Indication: COLORECTAL CANCER
     Dosage: 732 MG, EVERY 2 WEEKS
     Route: 042
     Dates: start: 20181218, end: 20181218
  11. FLUOROURACIL. [Suspect]
     Active Substance: FLUOROURACIL
     Dosage: 439.2 MG, EVERY 2 WEEKS
     Route: 040
     Dates: start: 20180724, end: 20180724
  12. METFORMINE [METFORMIN HYDROCHLORIDE] [Concomitant]
     Active Substance: METFORMIN HYDROCHLORIDE
     Indication: DIABETES MELLITUS
     Dosage: 850 MG, 1X/DAY
     Route: 048
     Dates: start: 2014
  13. AFLIBERCEPT [Suspect]
     Active Substance: AFLIBERCEPT
     Indication: COLORECTAL CANCER
     Dosage: 291.6 MG, EVERY 2 WEEKS
     Route: 042
     Dates: start: 20181218, end: 20181218
  14. FLUOROURACIL. [Suspect]
     Active Substance: FLUOROURACIL
     Dosage: 439.2 MG, EVERY 2 WEEKS
     Route: 040
     Dates: start: 20181217, end: 20181217
  15. ENALAPRIL [Concomitant]
     Active Substance: ENALAPRIL
     Indication: HYPERTENSION
     Dosage: 20 MG, 1X/DAY
     Route: 048
     Dates: start: 2003
  16. FLUOROURACIL. [Suspect]
     Active Substance: FLUOROURACIL
     Indication: COLORECTAL CANCER
     Dosage: 2635.2 MG, EVERY 2 WEEKS
     Route: 042
     Dates: start: 20180724, end: 20180724
  17. AMLODIPINE [Concomitant]
     Active Substance: AMLODIPINE BESYLATE
     Indication: HYPERTENSION
     Dosage: 5 MG, 1X/DAY
     Route: 048
     Dates: start: 20180811
  18. ADIRO [Concomitant]
     Active Substance: ASPIRIN
     Indication: ANGIOPATHY
     Dosage: 100 MG, 1X/DAY
     Route: 048
     Dates: start: 2014

REACTIONS (1)
  - Pulmonary embolism [Recovered/Resolved]

NARRATIVE: CASE EVENT DATE: 20181224
